FAERS Safety Report 21120217 (Version 1)
Quarter: 2022Q3

REPORT INFORMATION
  Report Type: Spontaneous
  Country: US (occurrence: None)
  Receive Date: 20220722
  Receipt Date: 20220722
  Transmission Date: 20221027
  Serious: Yes (Disabling)
  Sender: FDA-Public Use
  Company Number: None

PATIENT
  Age: 46 Year
  Sex: Female
  Weight: 61.23 kg

DRUGS (2)
  1. MAGNEVIST [Suspect]
     Active Substance: GADOPENTETATE DIMEGLUMINE
     Indication: X-ray with contrast
     Dosage: OTHER ROUTE : INJECTED INTO EACH HIP;?
     Route: 050
  2. VALACYCLOVIR [Concomitant]
     Active Substance: VALACYCLOVIR HYDROCHLORIDE

REACTIONS (11)
  - Pain in extremity [None]
  - Pain [None]
  - Pain in extremity [None]
  - Rash pruritic [None]
  - Skin lesion [None]
  - COVID-19 [None]
  - Drug hypersensitivity [None]
  - Pain [None]
  - Electric shock sensation [None]
  - Depression [None]
  - Quality of life decreased [None]

NARRATIVE: CASE EVENT DATE: 20161228
